FAERS Safety Report 19463264 (Version 1)
Quarter: 2021Q2

REPORT INFORMATION
  Report Type: Report from Study
  Country: ES (occurrence: ES)
  Receive Date: 20210625
  Receipt Date: 20210625
  Transmission Date: 20210717
  Serious: Yes (Death, Other)
  Sender: FDA-Public Use
  Company Number: ES-PFIZER INC-2021771271

PATIENT

DRUGS (6)
  1. DOXORUBICIN HCL [Suspect]
     Active Substance: DOXORUBICIN HYDROCHLORIDE
     Indication: HAEMATOLOGICAL MALIGNANCY
     Dosage: UNK, CYCLIC
  2. METHOTREXATE SODIUM. [Suspect]
     Active Substance: METHOTREXATE SODIUM
     Indication: HAEMATOLOGICAL MALIGNANCY
     Dosage: UNK, CYCLIC
  3. VINCRISTINE SULFATE. [Suspect]
     Active Substance: VINCRISTINE SULFATE
     Indication: HAEMATOLOGICAL MALIGNANCY
     Dosage: UNK, CYCLIC
  4. CYCLOPHOSPHAMIDE. [Suspect]
     Active Substance: CYCLOPHOSPHAMIDE
     Indication: HAEMATOLOGICAL MALIGNANCY
     Dosage: UNK, CYCLIC
  5. CYTARABINE. [Suspect]
     Active Substance: CYTARABINE
     Indication: HAEMATOLOGICAL MALIGNANCY
     Dosage: UNK, CYCLIC
  6. DEXAMETHASONE. [Suspect]
     Active Substance: DEXAMETHASONE
     Indication: HAEMATOLOGICAL MALIGNANCY
     Dosage: UNK, CYCLIC

REACTIONS (2)
  - Septic shock [Fatal]
  - Pancytopenia [Unknown]
